FAERS Safety Report 10593941 (Version 3)
Quarter: 2014Q4

REPORT INFORMATION
  Report Type: Spontaneous
  Country: US (occurrence: US)
  Receive Date: 20141119
  Receipt Date: 20141210
  Transmission Date: 20150529
  Serious: Yes (Death, Hospitalization)
  Sender: FDA-Public Use
  Company Number: US-UNITED THERAPEUTICS-UNT-2014-010674

PATIENT
  Age: 73 Year
  Sex: Male
  Weight: 70.3 kg

DRUGS (2)
  1. TYVASO [Suspect]
     Active Substance: TREPROSTINIL
     Indication: PULMONARY ARTERIAL HYPERTENSION
     Dosage: 18-54 ?G, QID
     Dates: start: 20141105
  2. ASPIRIN                            /00002701/ [Concomitant]
     Active Substance: ASPIRIN
     Indication: PRODUCT USED FOR UNKNOWN INDICATION

REACTIONS (5)
  - Pulmonary arterial hypertension [Fatal]
  - Pulmonary fibrosis [Unknown]
  - Disease progression [Fatal]
  - Interstitial lung disease [Fatal]
  - Cardiac disorder [Unknown]

NARRATIVE: CASE EVENT DATE: 2014
